FAERS Safety Report 23783553 (Version 1)
Quarter: 2024Q2

REPORT INFORMATION
  Report Type: Spontaneous
  Country: US (occurrence: US)
  Receive Date: 20240425
  Receipt Date: 20240425
  Transmission Date: 20240716
  Serious: No
  Sender: FDA-Public Use
  Company Number: US-HALEON-2170236

PATIENT
  Age: 96 Year

DRUGS (1)
  1. SENSODYNE CLINICAL WHITE ENAMEL STRENGTHENING [Suspect]
     Active Substance: POTASSIUM NITRATE\SODIUM FLUORIDE
     Indication: Dental disorder prophylaxis
     Dosage: EXPDATE:20270701
     Dates: start: 202404

REACTIONS (2)
  - Abdominal pain upper [Recovered/Resolved]
  - Product taste abnormal [Unknown]

NARRATIVE: CASE EVENT DATE: 20240401
